FAERS Safety Report 19847531 (Version 1)
Quarter: 2021Q3

REPORT INFORMATION
  Report Type: Spontaneous
  Country: US (occurrence: US)
  Receive Date: 20210917
  Receipt Date: 20210917
  Transmission Date: 20211014
  Serious: Yes (Other)
  Sender: FDA-Public Use
  Company Number: US-PFIZER INC-202101191957

PATIENT
  Age: 78 Year
  Sex: Female

DRUGS (4)
  1. TRAZODONE [Concomitant]
     Active Substance: TRAZODONE HYDROCHLORIDE
     Indication: SLEEP DISORDER
     Dosage: 100 MG, 1X/DAY (ONCE AT NIGHT )
  2. CHANTIX [Suspect]
     Active Substance: VARENICLINE TARTRATE
     Indication: SMOKING CESSATION THERAPY
     Dosage: UNK
  3. TRINTELLIX [Concomitant]
     Active Substance: VORTIOXETINE HYDROBROMIDE
     Dosage: 10 MG
  4. TRINTELLIX [Concomitant]
     Active Substance: VORTIOXETINE HYDROBROMIDE
     Dosage: 5 MG, 1X/DAY (5MG EVERY NIGHT WITH TRAZODONE)

REACTIONS (11)
  - Renal pain [Unknown]
  - Tremor [Unknown]
  - Parkinson^s disease [Unknown]
  - Weight decreased [Unknown]
  - Fall [Unknown]
  - Pain [Unknown]
  - Loss of consciousness [Unknown]
  - Arthralgia [Unknown]
  - Contusion [Unknown]
  - Breast pain [Unknown]
  - Back pain [Unknown]
